FAERS Safety Report 12922975 (Version 1)
Quarter: 2016Q4

REPORT INFORMATION
  Report Type: Report from Study
  Country: CA (occurrence: CA)
  Receive Date: 20161109
  Receipt Date: 20161109
  Transmission Date: 20170207
  Serious: Yes (Hospitalization)
  Sender: FDA-Public Use
  Company Number: CA-ROCHE-1808189

PATIENT
  Sex: Male

DRUGS (3)
  1. ZELBORAF [Suspect]
     Active Substance: VEMURAFENIB
     Indication: METASTATIC MALIGNANT MELANOMA
     Route: 048
     Dates: start: 20160721, end: 20161018
  2. DECADRON [Concomitant]
     Active Substance: DEXAMETHASONE
  3. COTELLIC [Suspect]
     Active Substance: COBIMETINIB
     Indication: METASTATIC MALIGNANT MELANOMA
     Route: 048
     Dates: start: 20160721, end: 20161018

REACTIONS (5)
  - Renal failure [Unknown]
  - Dysgeusia [Unknown]
  - Dehydration [Unknown]
  - Photosensitivity reaction [Unknown]
  - Blood creatinine increased [Unknown]
